FAERS Safety Report 21473377 (Version 1)
Quarter: 2022Q4

REPORT INFORMATION
  Report Type: Spontaneous
  Country: US (occurrence: None)
  Receive Date: 20221017
  Receipt Date: 20221017
  Transmission Date: 20230113
  Serious: Yes (Death)
  Sender: FDA-Public Use
  Company Number: None

PATIENT
  Sex: Female

DRUGS (15)
  1. ENBREL [Suspect]
     Active Substance: ETANERCEPT
     Route: 058
     Dates: start: 20150528, end: 20221016
  2. ASPIR-LOW [Concomitant]
  3. ATENOLOL [Concomitant]
     Active Substance: ATENOLOL
  4. FAMOTIDINE SUS [Concomitant]
  5. FOLIC ACID CAP [Concomitant]
  6. IRON TAB [Concomitant]
  7. LASIX TAB [Concomitant]
  8. MULTIPLEVITMAIN TAB [Concomitant]
  9. OMEPRAZOLE SODIUM [Concomitant]
     Active Substance: OMEPRAZOLE SODIUM
  10. PREDNISONE PAK [Concomitant]
  11. SULFASALAZINE DELAYED-RELEASE [Concomitant]
     Active Substance: SULFASALAZINE
  12. VITAMIN B12 [Concomitant]
     Active Substance: CYANOCOBALAMIN
  13. VITAMIN B6 [Concomitant]
     Active Substance: PYRIDOXINE HYDROCHLORIDE
  14. VITAMIN D CAP [Concomitant]
  15. VITAMIN E CAP [Concomitant]

REACTIONS (1)
  - Death [None]
